FAERS Safety Report 17498707 (Version 2)
Quarter: 2020Q1

REPORT INFORMATION
  Report Type: Spontaneous
  Country: FR (occurrence: FR)
  Receive Date: 20200304
  Receipt Date: 20200330
  Transmission Date: 20200409
  Serious: Yes (Death)
  Sender: FDA-Public Use
  Company Number: FR-ELI_LILLY_AND_COMPANY-FR202002014255

PATIENT
  Age: 51 Year
  Sex: Male
  Weight: 80 kg

DRUGS (9)
  1. CISPLATINE [Suspect]
     Active Substance: CISPLATIN
     Indication: TESTICULAR CANCER METASTATIC
     Dosage: 41 MG, DAILY
     Route: 041
     Dates: start: 20191028, end: 20200112
  2. PACLITAXEL. [Suspect]
     Active Substance: PACLITAXEL
     Indication: TESTICULAR CANCER METASTATIC
     Dosage: 175 MG/M2, OTHER
     Route: 041
     Dates: start: 20191028, end: 20191118
  3. OLANZAPINE. [Suspect]
     Active Substance: OLANZAPINE
     Indication: NAUSEA
     Dosage: 5 MG, DAILY
     Route: 048
     Dates: start: 20200108, end: 20200112
  4. NEBIVOLOL. [Suspect]
     Active Substance: NEBIVOLOL
     Indication: HYPERTENSION
     Dosage: 10 MG, DAILY
     Route: 048
  5. IFOSFAMIDE. [Suspect]
     Active Substance: IFOSFAMIDE
     Indication: TESTICULAR CANCER METASTATIC
     Dosage: 4000 MG, DAILY
     Route: 041
     Dates: start: 20191028, end: 20200112
  6. LERCANIDIPINE [Suspect]
     Active Substance: LERCANIDIPINE
     Indication: HYPERTENSION
     Dosage: 10 MG, DAILY
     Route: 048
  7. OXALIPLATINE [Suspect]
     Active Substance: OXALIPLATIN
     Indication: TESTICULAR CANCER METASTATIC
     Dosage: 130 MG/M2, OTHER
     Route: 041
     Dates: start: 20191107, end: 20191127
  8. BLEOMYCIN [Suspect]
     Active Substance: BLEOMYCIN SULFATE
     Indication: TESTICULAR CANCER METASTATIC
     Dosage: 25 MG, DAILY
     Route: 041
     Dates: start: 20191028, end: 20200112
  9. ONDANSETRON [Suspect]
     Active Substance: ONDANSETRON
     Indication: NAUSEA
     Dosage: 16 MG, DAILY
     Route: 048
     Dates: start: 20200108, end: 20200112

REACTIONS (4)
  - Acute respiratory distress syndrome [Fatal]
  - Dyspnoea [Fatal]
  - Pyrexia [Fatal]
  - Off label use [Unknown]

NARRATIVE: CASE EVENT DATE: 20200113
